FAERS Safety Report 7050564-7 (Version None)
Quarter: 2010Q4

REPORT INFORMATION
  Report Type: 
  Country: None (occurrence: None)
  Receive Date: 20101018
  Receipt Date: 20101004
  Transmission Date: 20110411
  Serious: Yes (Hospitalization)
  Sender: FDA-Public Use
  Company Number: US-DX529-2010DX000045

PATIENT
  Age: 33 Year
  Sex: Female
  Weight: 63.96 kg

DRUGS (5)
  1. KALBITOR [Suspect]
     Indication: HEREDITARY ANGIOEDEMA
     Route: 058
     Dates: start: 20100818, end: 20100818
  2. COUMADIN [Concomitant]
     Indication: DEEP VEIN THROMBOSIS
     Dates: start: 20090101
  3. COUMADIN [Concomitant]
     Dates: start: 20090101
  4. FLUOXETINE [Concomitant]
     Indication: DEPRESSION
  5. FERAHEME [Concomitant]
     Indication: IRON DEFICIENCY ANAEMIA
     Route: 042
     Dates: end: 20101004

REACTIONS (3)
  - CHEST DISCOMFORT [None]
  - DYSPNOEA [None]
  - FLUSHING [None]
